FAERS Safety Report 5977460-8 (Version None)
Quarter: 2008Q4

REPORT INFORMATION
  Report Type: 
  Country: None (occurrence: None)
  Receive Date: 20081203
  Receipt Date: 20081128
  Transmission Date: 20090506
  Serious: Yes (Other)
  Sender: FDA-Public Use
  Company Number: B0547959A

PATIENT
  Age: 56 Year
  Sex: Female

DRUGS (1)
  1. LAPATINIB [Suspect]
     Indication: BREAST CANCER
     Dosage: 1250MG PER DAY
     Route: 048

REACTIONS (15)
  - ACRODERMATITIS [None]
  - ALOPECIA [None]
  - DERMATITIS [None]
  - DRUG TOXICITY [None]
  - ERYTHEMA [None]
  - FOLLICULITIS [None]
  - GRANULOMA [None]
  - HYPERKERATOSIS FOLLICULARIS ET PARAFOLLICULARIS [None]
  - NAIL DISORDER [None]
  - PARONYCHIA [None]
  - PRURITUS [None]
  - PYOGENIC GRANULOMA [None]
  - SKIN DISCOLOURATION [None]
  - SKIN EXFOLIATION [None]
  - SKIN FISSURES [None]
